FAERS Safety Report 4869654-X (Version None)
Quarter: 2005Q4

REPORT INFORMATION
  Report Type: 
  Country: None (occurrence: None)
  Receive Date: 20051230
  Receipt Date: 20051227
  Transmission Date: 20060501
  Serious: Yes (Death, Hospitalization)
  Sender: FDA-Public Use
  Company Number: US-ABBOTT-05P-163-0320688-00

PATIENT
  Sex: Female

DRUGS (13)
  1. BIAXIN [Suspect]
     Indication: LUNG INFECTION
     Route: 048
     Dates: start: 20050221
  2. ALENDRONATE SODIUM [Concomitant]
     Indication: OSTEOPOROSIS
     Route: 048
  3. OMEPRAZOLE [Concomitant]
     Indication: PEPTIC ULCER
     Route: 048
  4. SALBUTAMOL [Concomitant]
     Indication: LUNG INFECTION
     Route: 055
  5. DONEPEZIL HYDROCHLORIDE [Concomitant]
     Indication: DEMENTIA ALZHEIMER'S TYPE
     Route: 048
  6. TOPROL-XL [Concomitant]
     Indication: BLOOD PRESSURE INCREASED
     Route: 048
  7. SERTRALINE HYDROCHLORIDE [Concomitant]
     Indication: DEPRESSION
     Route: 048
  8. LEVOTHYROXINE SODIUM [Concomitant]
     Indication: HYPOTHYROIDISM
     Route: 048
  9. ZOLPIDEM TARTRATE [Concomitant]
     Indication: INSOMNIA
     Route: 048
  10. POTASSIUM CHLORIDE [Concomitant]
     Indication: ELECTROLYTE SUBSTITUTION THERAPY
     Route: 048
  11. VICODIN [Concomitant]
     Indication: ARTHRALGIA
     Route: 048
  12. ALPRAZOLAM [Concomitant]
     Indication: RELAXATION THERAPY
     Route: 048
  13. OXYGEN [Concomitant]
     Indication: LUNG INFECTION
     Route: 055

REACTIONS (1)
  - PNEUMONIA [None]
